FAERS Safety Report 17939196 (Version 1)
Quarter: 2020Q2

REPORT INFORMATION
  Report Type: Other
  Country: US (occurrence: US)
  Receive Date: 20200625
  Receipt Date: 20200625
  Transmission Date: 20200714
  Serious: Yes (Hospitalization)
  Sender: FDA-Public Use
  Company Number: US-NUVO PHARMACEUTICALS INC-2086654

PATIENT
  Age: 65 Year
  Sex: Female

DRUGS (1)
  1. SULFASALAZINE. [Suspect]
     Active Substance: SULFASALAZINE
     Indication: PSORIATIC ARTHROPATHY
     Route: 065

REACTIONS (4)
  - Neutropenic colitis [Recovered/Resolved]
  - Neutropenia [Recovered/Resolved]
  - Syncope [Unknown]
  - Acute kidney injury [Unknown]
